FAERS Safety Report 4759155-1 (Version None)
Quarter: 2005Q3

REPORT INFORMATION
  Report Type: 
  Country: None (occurrence: None)
  Receive Date: 20050826
  Receipt Date: 20050815
  Transmission Date: 20060218
  Serious: Yes (Hospitalization)
  Sender: FDA-Public Use
  Company Number: 200415146BCC

PATIENT
  Age: 79 Year
  Sex: Male
  Weight: 79.3795 kg

DRUGS (10)
  1. ALEVE (CAPLET) [Suspect]
     Indication: BACK PAIN
     Dosage: 440 MG, QD, ORAL
     Route: 048
     Dates: start: 20041010, end: 20041015
  2. HYZAAR [Concomitant]
  3. IMDUR [Concomitant]
  4. PLETAL [Concomitant]
  5. ZOCOR [Concomitant]
  6. VYTORIN [Concomitant]
  7. FLOMAX [Concomitant]
  8. FOLIC ACID [Concomitant]
  9. PLAVIX [Suspect]
     Dosage: 75 MG, QD
  10. ECOTRIN(ACETYLSALICYLIC ACID) [Suspect]
     Indication: BACK PAIN
     Dosage: 81 MG QD ORAL 3 YEARS
     Route: 048

REACTIONS (31)
  - ABDOMINAL DISTENSION [None]
  - ANAEMIA [None]
  - BACTERIAL SEPSIS [None]
  - BLOOD ALBUMIN DECREASED [None]
  - BLOOD CREATININE INCREASED [None]
  - BLOOD UREA INCREASED [None]
  - BODY TEMPERATURE INCREASED [None]
  - BOWEL SOUNDS ABNORMAL [None]
  - CARDIAC FAILURE CONGESTIVE [None]
  - CLOSTRIDIUM COLITIS [None]
  - DECUBITUS ULCER [None]
  - DYSPNOEA EXACERBATED [None]
  - GASTRIC DISORDER [None]
  - GASTRIC HAEMORRHAGE [None]
  - HAEMATOCRIT DECREASED [None]
  - HAEMOGLOBIN DECREASED [None]
  - HYPOKALAEMIA [None]
  - NAUSEA [None]
  - OXYGEN SATURATION ABNORMAL [None]
  - PERITONEAL DISORDER [None]
  - POST PROCEDURAL HAEMORRHAGE [None]
  - PSEUDOMONAS INFECTION [None]
  - RECTAL HAEMORRHAGE [None]
  - RENAL FAILURE [None]
  - RESPIRATORY FAILURE [None]
  - SINUS TACHYCARDIA [None]
  - SMALL INTESTINAL HAEMORRHAGE [None]
  - TACHYPNOEA [None]
  - URINARY TRACT INFECTION [None]
  - URINE OUTPUT DECREASED [None]
  - WHITE BLOOD CELL COUNT INCREASED [None]
